FAERS Safety Report 9272045 (Version 1)
Quarter: 2013Q2

REPORT INFORMATION
  Report Type: Spontaneous
  Country: US (occurrence: US)
  Receive Date: 20130506
  Receipt Date: 20130506
  Transmission Date: 20140414
  Serious: No
  Sender: FDA-Public Use
  Company Number: US-TEVA-400021USA

PATIENT
  Sex: Female

DRUGS (3)
  1. NUVIGIL [Suspect]
     Indication: FIBROMYALGIA
  2. LYRICA [Concomitant]
     Indication: DEPRESSION
  3. CYMBALATA [Concomitant]
     Indication: DEPRESSION

REACTIONS (1)
  - Off label use [Unknown]
